FAERS Safety Report 6025606-8 (Version None)
Quarter: 2008Q4

REPORT INFORMATION
  Report Type: 
  Country: None (occurrence: None)
  Receive Date: 20081231
  Receipt Date: 20081212
  Transmission Date: 20090506
  Serious: No
  Sender: FDA-Public Use
  Company Number: US-B.I. PHARMACEUTICALS,INC./RIDGEFIELD-2008-BP-18540BP

PATIENT
  Sex: Female

DRUGS (5)
  1. MIRAPEX [Suspect]
     Indication: PARKINSON'S DISEASE
     Dosage: 2MG
     Route: 048
     Dates: start: 20070701
  2. SINEMET [Concomitant]
     Indication: PARKINSON'S DISEASE
  3. CARPIDOPA/LEVODOPA [Concomitant]
     Indication: PARKINSON'S DISEASE
  4. FOSAMAX [Concomitant]
     Indication: OSTEOPOROSIS
  5. TAMOXIFEN [Concomitant]
     Indication: BREAST CANCER

REACTIONS (1)
  - ALOPECIA [None]
